FAERS Safety Report 21354226 (Version 1)
Quarter: 2022Q3

REPORT INFORMATION
  Report Type: Spontaneous
  Country: US (occurrence: US)
  Receive Date: 20220920
  Receipt Date: 20220920
  Transmission Date: 20221027
  Serious: Yes (Other)
  Sender: FDA-Public Use
  Company Number: US-STRIDES ARCOLAB LIMITED-2022SP009636

PATIENT
  Age: 73 Year
  Sex: Male

DRUGS (6)
  1. DICLOFENAC [Suspect]
     Active Substance: DICLOFENAC
     Indication: Arthralgia
     Dosage: UNK
     Route: 065
  2. PIROXICAM [Suspect]
     Active Substance: PIROXICAM
     Indication: Arthralgia
     Dosage: UNK
     Route: 065
  3. INDOMETHACIN SODIUM [Suspect]
     Active Substance: INDOMETHACIN SODIUM
     Indication: Arthralgia
     Dosage: UNK
     Route: 065
  4. ATROPINE [Suspect]
     Active Substance: ATROPINE
     Indication: Arthralgia
     Dosage: UNK
     Route: 065
  5. EPHEDRINE [Suspect]
     Active Substance: EPHEDRINE
     Indication: Arthralgia
     Dosage: UNK
     Route: 065
  6. PSEUDOEPHEDRINE [Suspect]
     Active Substance: PSEUDOEPHEDRINE
     Indication: Arthralgia
     Dosage: UNK
     Route: 065

REACTIONS (2)
  - Gastrointestinal haemorrhage [Unknown]
  - Off label use [Unknown]
